FAERS Safety Report 4764807-3 (Version None)
Quarter: 2005Q3

REPORT INFORMATION
  Report Type: 
  Country: None (occurrence: None)
  Receive Date: 20050909
  Receipt Date: 20050830
  Transmission Date: 20060218
  Serious: Yes (Hospitalization)
  Sender: FDA-Public Use
  Company Number: 200517729GDDC

PATIENT
  Age: 11 Year
  Sex: Female
  Weight: 60 kg

DRUGS (4)
  1. CEFOTAXIME [Suspect]
     Indication: OSTEOMYELITIS
     Route: 042
     Dates: start: 20050713, end: 20051008
  2. METRONIDAZOLE [Concomitant]
     Indication: OSTEOMYELITIS
     Dates: start: 20050713
  3. ACYCLOVIR [Concomitant]
     Indication: ENCEPHALITIS
     Route: 042
     Dates: start: 20050713, end: 20050714
  4. CHLORAL HYDRATE [Concomitant]
     Indication: AGITATION
     Route: 048
     Dates: start: 20050717, end: 20050718

REACTIONS (6)
  - CEREBRAL INFARCTION [None]
  - ENCEPHALITIS [None]
  - INFARCTION [None]
  - OSTEOMYELITIS [None]
  - RASH MACULO-PAPULAR [None]
  - SINUSITIS [None]
